FAERS Safety Report 10003835 (Version 1)
Quarter: 2014Q1

REPORT INFORMATION
  Report Type: Spontaneous
  Country: US (occurrence: US)
  Receive Date: 20140312
  Receipt Date: 20140312
  Transmission Date: 20141002
  Serious: Yes (Other)
  Sender: FDA-Public Use
  Company Number: US-SA-2014SA030895

PATIENT
  Age: 37 Year
  Sex: Female

DRUGS (1)
  1. NASACORT ALLERGY [Suspect]
     Indication: HYPERSENSITIVITY
     Route: 065

REACTIONS (2)
  - Cardiac flutter [Unknown]
  - Therapeutic response decreased [Unknown]
